FAERS Safety Report 6844275-8 (Version None)
Quarter: 2010Q3

REPORT INFORMATION
  Report Type: 
  Country: None (occurrence: None)
  Receive Date: 20100715
  Receipt Date: 20100706
  Transmission Date: 20110219
  Serious: Yes (Life-Threatening, Hospitalization)
  Sender: FDA-Public Use
  Company Number: BR-ROCHE-708947

PATIENT
  Sex: Male
  Weight: 63 kg

DRUGS (5)
  1. METHOXY POLYETHYLENE GLYCOL-EPOETIN BETA [Suspect]
     Dosage: LAST DOSE PRIOR TO SAE: 07 JUNE 2010. DOSE FORM: PSF (PRE-FILLED SYRINGE). PERMANENTLY DISCONTINUED.
     Route: 058
     Dates: start: 20091223, end: 20100706
  2. ASPIRINE [Concomitant]
     Dates: start: 20090501
  3. AMLODIPINE [Concomitant]
     Dates: start: 20090501
  4. METOCLOPRAMIDE [Concomitant]
     Dates: start: 20100208
  5. METOPROLOL [Concomitant]
     Dates: start: 20090501

REACTIONS (2)
  - HEPATIC NEOPLASM MALIGNANT [None]
  - HICCUPS [None]
